FAERS Safety Report 19575391 (Version 3)
Quarter: 2022Q2

REPORT INFORMATION
  Report Type: Spontaneous
  Country: JP (occurrence: JP)
  Receive Date: 20210719
  Receipt Date: 20220412
  Transmission Date: 20220721
  Serious: Yes (Hospitalization, Other)
  Sender: FDA-Public Use
  Company Number: JP-MSD-M2021-15403

PATIENT
  Age: 59 Year
  Sex: Female

DRUGS (1)
  1. KEYTRUDA [Suspect]
     Active Substance: PEMBROLIZUMAB
     Indication: Transitional cell cancer of the renal pelvis and ureter
     Dosage: 200 MILLIGRAM, Q3W
     Route: 041
     Dates: end: 2021

REACTIONS (3)
  - Cholangitis [Unknown]
  - Jaundice cholestatic [Recovering/Resolving]
  - Immune-mediated pancreatitis [Recovering/Resolving]

NARRATIVE: CASE EVENT DATE: 20210101
